FAERS Safety Report 5927471-3 (Version None)
Quarter: 2008Q4

REPORT INFORMATION
  Report Type: 
  Country: None (occurrence: None)
  Receive Date: 20081021
  Receipt Date: 20081021
  Transmission Date: 20090506
  Serious: No
  Sender: FDA-Public Use
  Company Number: None

PATIENT
  Age: 53 Year
  Sex: Female
  Weight: 61.2356 kg

DRUGS (3)
  1. GABAPENTIN [Suspect]
     Indication: BACK PAIN
     Dosage: 1 300 MG TAB 2 TIMES PER DAY
     Dates: start: 20081017, end: 20081020
  2. GABAPENTIN [Suspect]
     Indication: PAIN IN EXTREMITY
     Dosage: 1 300 MG TAB 2 TIMES PER DAY
     Dates: start: 20081017, end: 20081020
  3. GABAPENTIN [Suspect]
     Indication: SURGICAL FAILURE
     Dosage: 1 300 MG TAB 2 TIMES PER DAY
     Dates: start: 20081017, end: 20081020

REACTIONS (5)
  - DEPRESSION [None]
  - DIZZINESS [None]
  - FATIGUE [None]
  - LETHARGY [None]
  - SUICIDAL IDEATION [None]
